FAERS Safety Report 25429005 (Version 1)
Quarter: 2025Q2

REPORT INFORMATION
  Report Type: Report from Study
  Country: AU (occurrence: AU)
  Receive Date: 20250612
  Receipt Date: 20250612
  Transmission Date: 20250717
  Serious: Yes (Hospitalization)
  Sender: UCB
  Company Number: AU-UCBSA-2025001397

PATIENT
  Age: 62 Year
  Sex: Female

DRUGS (2)
  1. BIMEKIZUMAB [Suspect]
     Active Substance: BIMEKIZUMAB
     Indication: Psoriasis
     Dosage: 320 MILLIGRAM, EV 4 WEEKS
     Dates: start: 20240917
  2. BIMEKIZUMAB [Suspect]
     Active Substance: BIMEKIZUMAB
     Dosage: 320 MILLIGRAM, EV 8 WEEKS
     Route: 058

REACTIONS (10)
  - Blood pressure increased [Recovering/Resolving]
  - Injection site pain [Recovering/Resolving]
  - Injection site urticaria [Recovering/Resolving]
  - Injection site bruising [Recovering/Resolving]
  - Headache [Recovering/Resolving]
  - Condition aggravated [Recovering/Resolving]
  - Intervertebral disc protrusion [Recovering/Resolving]
  - Herpes zoster [Recovering/Resolving]
  - Wisdom teeth removal [Recovering/Resolving]
  - Injection site erythema [Recovering/Resolving]

NARRATIVE: CASE EVENT DATE: 20250107
